FAERS Safety Report 5855038-4 (Version None)
Quarter: 2008Q3

REPORT INFORMATION
  Report Type: 
  Country: None (occurrence: None)
  Receive Date: 20080822
  Receipt Date: 20080603
  Transmission Date: 20090109
  Serious: No
  Sender: FDA-Public Use
  Company Number: US-ABBOTT-08P-163-0455366-00

PATIENT
  Sex: Female
  Weight: 122.58 kg

DRUGS (3)
  1. SYNTHROID [Suspect]
     Indication: HYPOTHYROIDISM
     Route: 048
     Dates: start: 19920101
  2. SYNTHROID [Suspect]
     Dosage: DOSE VARIED UNTIL ADJUSTED
     Route: 048
     Dates: start: 19870101, end: 19920101
  3. ESTRODIAL [Concomitant]
     Indication: HYSTERECTOMY
     Route: 048
     Dates: start: 19891101

REACTIONS (8)
  - DEPRESSION [None]
  - HEADACHE [None]
  - HYPERSOMNIA [None]
  - LOCAL SWELLING [None]
  - MALAISE [None]
  - PERIPHERAL COLDNESS [None]
  - THINKING ABNORMAL [None]
  - UNEVALUABLE EVENT [None]
